FAERS Safety Report 8801317 (Version 1)
Quarter: 2012Q4

REPORT INFORMATION
  Report Type: 
  Country: US (occurrence: US)
  Receive Date: 20120921
  Receipt Date: 20120921
  Transmission Date: 20130627
  Serious: Yes (Life-Threatening, Other)
  Sender: FDA-Public Use
  Company Number: US-009507513-1209USA006089

PATIENT

DRUGS (2)
  1. SAPHRIS [Suspect]
     Dosage: 10 mg, qd
  2. SEROQUEL [Suspect]
     Dosage: 200 mg, qd

REACTIONS (7)
  - Suicide attempt [Unknown]
  - Dizziness [Unknown]
  - Anxiety [Unknown]
  - Hypertension [Unknown]
  - Syncope [Unknown]
  - Confusional state [Unknown]
  - Heart rate irregular [Unknown]
